FAERS Safety Report 8804393 (Version 2)
Quarter: 2013Q4

REPORT INFORMATION
  Report Type: Spontaneous
  Country: US (occurrence: US)
  Receive Date: 20120923
  Receipt Date: 20131001
  Transmission Date: 20140711
  Serious: No
  Sender: FDA-Public Use
  Company Number: US-BIOGENIDEC-2012BI037710

PATIENT
  Sex: Male

DRUGS (2)
  1. AVONEX [Suspect]
     Indication: MULTIPLE SCLEROSIS
     Route: 030
  2. AVONEX [Suspect]
     Indication: MULTIPLE SCLEROSIS
     Route: 030
     Dates: start: 20101128

REACTIONS (9)
  - Quality of life decreased [Unknown]
  - Cough [Unknown]
  - Aphonia [Unknown]
  - Adverse event [Unknown]
  - Dysphonia [Unknown]
  - Chest pain [Not Recovered/Not Resolved]
  - Influenza like illness [Unknown]
  - Headache [Unknown]
  - Malaise [Unknown]
